FAERS Safety Report 12660317 (Version 1)
Quarter: 2016Q3

REPORT INFORMATION
  Report Type: Spontaneous
  Country: PL (occurrence: PL)
  Receive Date: 20160817
  Receipt Date: 20160817
  Transmission Date: 20161109
  Serious: Yes (Hospitalization)
  Sender: FDA-Public Use
  Company Number: PL-ASTRAZENECA-2016SE84391

PATIENT
  Age: 51 Year
  Sex: Male

DRUGS (5)
  1. MONTELUKAST [Concomitant]
     Active Substance: MONTELUKAST SODIUM
  2. METHYLOPREDNISOLONE [Concomitant]
     Indication: ASTHMA PROPHYLAXIS
  3. PREDNISONE. [Concomitant]
     Active Substance: PREDNISONE
     Indication: ASTHMA PROPHYLAXIS
     Dosage: 30.0MG UNKNOWN
     Route: 048
  4. BUDESONIDE, FORMOTEROL FUMARATE [Suspect]
     Active Substance: BUDESONIDE\FORMOTEROL FUMARATE DIHYDRATE
     Dosage: 320 UG AND 9 UG RESPECTIVELY TWICE A DAY.
     Route: 055
  5. THEOPHYLLINE [Suspect]
     Active Substance: THEOPHYLLINE ANHYDROUS
     Route: 065

REACTIONS (9)
  - Osteoporosis [None]
  - Lumbar vertebral fracture [None]
  - Wheezing [Unknown]
  - Aspergilloma [None]
  - Productive cough [Unknown]
  - Dyspnoea [Unknown]
  - Cataract [None]
  - Thoracic vertebral fracture [None]
  - Ischaemic stroke [None]
